FAERS Safety Report 9848338 (Version 1)
Quarter: 2014Q1

REPORT INFORMATION
  Report Type: Spontaneous
  Country: US (occurrence: None)
  Receive Date: 20140127
  Receipt Date: 20140127
  Transmission Date: 20141002
  Serious: Yes (Life-Threatening, Hospitalization, Other)
  Sender: FDA-Public Use
  Company Number: None

PATIENT
  Age: 63 Year
  Sex: Female
  Weight: 63.5 kg

DRUGS (3)
  1. DULOXETINE [Suspect]
     Indication: TENDONITIS
     Route: 048
     Dates: start: 20140113, end: 20140119
  2. DULOXETINE [Suspect]
     Indication: SERONEGATIVE ARTHRITIS
     Route: 048
     Dates: start: 20140113, end: 20140119
  3. DULOXETINE [Suspect]
     Indication: PAIN
     Route: 048
     Dates: start: 20140113, end: 20140119

REACTIONS (16)
  - Somnolence [None]
  - Tendon pain [None]
  - Condition aggravated [None]
  - Thinking abnormal [None]
  - Sleep disorder [None]
  - Asthenia [None]
  - Muscle twitching [None]
  - Hypertension [None]
  - Dehydration [None]
  - Feeling abnormal [None]
  - Flushing [None]
  - Tachypnoea [None]
  - Heart rate increased [None]
  - Mental disorder [None]
  - Serotonin syndrome [None]
  - Product substitution issue [None]
